FAERS Safety Report 9225319 (Version 1)
Quarter: 2013Q1

REPORT INFORMATION
  Report Type: Spontaneous
  Country: US (occurrence: None)
  Receive Date: 20120912
  Receipt Date: 20120912
  Transmission Date: 20140127
  Serious: No
  Sender: FDA-Public Use
  Company Number: 2012SP017206

PATIENT
  Sex: Male

DRUGS (3)
  1. SAPHRIS [Suspect]
     Indication: SCHIZOPHRENIA
     Route: 060
  2. RISPERIDONE [Concomitant]
  3. SEROQUEL [Concomitant]

REACTIONS (4)
  - Agitation [None]
  - Irritability [None]
  - Underdose [None]
  - Inappropriate schedule of drug administration [None]
